FAERS Safety Report 17678588 (Version 2)
Quarter: 2020Q2

REPORT INFORMATION
  Report Type: Spontaneous
  Country: US (occurrence: US)
  Receive Date: 20200417
  Receipt Date: 20200618
  Transmission Date: 20200714
  Serious: No
  Sender: FDA-Public Use
  Company Number: US-ASTRAZENECA-2020SE47258

PATIENT
  Sex: Female
  Weight: 52.2 kg

DRUGS (2)
  1. SYMBICORT [Suspect]
     Active Substance: BUDESONIDE\FORMOTEROL FUMARATE DIHYDRATE
     Indication: CHRONIC OBSTRUCTIVE PULMONARY DISEASE
     Dosage: 160/4.5 MCG, 2 PUFFS, (TWO TIMES A DAY)
     Route: 055
  2. PREDNISONE. [Concomitant]
     Active Substance: PREDNISONE
     Indication: DYSPNOEA
     Dosage: UNKNOWN
     Route: 065

REACTIONS (5)
  - Intentional device misuse [Unknown]
  - Wrong technique in device usage process [Unknown]
  - Device issue [Unknown]
  - Incorrect dose administered by device [Unknown]
  - Dyspnoea [Unknown]
